FAERS Safety Report 7207415-7 (Version None)
Quarter: 2010Q4

REPORT INFORMATION
  Report Type: 
  Country: None (occurrence: None)
  Receive Date: 20101217
  Receipt Date: 20101203
  Transmission Date: 20110411
  Serious: Yes (Other)
  Sender: FDA-Public Use
  Company Number: 1000017693

PATIENT
  Sex: Male

DRUGS (1)
  1. MEMANTINE HCL [Suspect]
     Dosage: 10 MG (10 MG, 1 IN 1 D)
     Dates: start: 20101101

REACTIONS (3)
  - ABNORMAL BEHAVIOUR [None]
  - CONFUSIONAL STATE [None]
  - HYPOKINESIA [None]
